FAERS Safety Report 5766843-7 (Version None)
Quarter: 2008Q2

REPORT INFORMATION
  Report Type: 
  Country: None (occurrence: None)
  Receive Date: 20080609
  Receipt Date: 20080530
  Transmission Date: 20081010
  Serious: Yes (Death)
  Sender: FDA-Public Use
  Company Number: GXBR2008US01246

PATIENT
  Age: 42 Year
  Sex: Male
  Weight: 119.9 kg

DRUGS (17)
  1. ALPRAZOLAM [Suspect]
     Indication: ANXIETY
  2. COCAINE (COCAINE) [Suspect]
     Dates: start: 20080226
  3. PEG-INTRON [Suspect]
     Indication: HEPATITIS C
     Dosage: 150 UG,QW;SUBCUTANEOUS
     Route: 058
     Dates: start: 20071217, end: 20080101
  4. PEG-INTRON [Suspect]
     Indication: HEPATITIS C
     Dosage: 150 UG,QW;SUBCUTANEOUS
     Route: 058
     Dates: start: 20080101
  5. REBETOL [Suspect]
     Indication: HEPATITIS C
     Dosage: 1000 MG, QD; ORAL
     Route: 048
     Dates: start: 20071217
  6. METFORMIN HCL [Concomitant]
  7. ASPIRIN [Suspect]
  8. ATENOLOL [Concomitant]
  9. CITALOPRAM HYDROBROMIDE [Concomitant]
  10. GLIMEPIRIDE [Concomitant]
  11. HYDROCHLOROTHIAZIDE [Concomitant]
  12. LISINOPRIL [Concomitant]
  13. LOVASTATIN [Concomitant]
  14. MULTIVITAMINS (ASCORBIC ACID, ERGOCALCIFEROL, FOLIC ACID, NICOTINAMIDE [Concomitant]
  15. QUETIAPINE FUMARATE [Concomitant]
  16. SILDENAFIL CITRATE [Concomitant]
  17. ZOLPIDEM [Concomitant]

REACTIONS (14)
  - ACCIDENTAL DEATH [None]
  - ANOXIC ENCEPHALOPATHY [None]
  - ARTERIOSCLEROSIS CORONARY ARTERY [None]
  - BLOOD GLUCOSE INCREASED [None]
  - CEREBRAL ISCHAEMIA [None]
  - DRUG ABUSE [None]
  - DRUG LEVEL ABOVE THERAPEUTIC [None]
  - HYDROCEPHALUS [None]
  - HYPERTENSIVE HEART DISEASE [None]
  - HYPOTHERMIA [None]
  - REFUSAL OF TREATMENT BY RELATIVE [None]
  - RESPIRATORY ARREST [None]
  - SLEEP APNOEA SYNDROME [None]
  - UNRESPONSIVE TO STIMULI [None]
